FAERS Safety Report 21301426 (Version 1)
Quarter: 2022Q3

REPORT INFORMATION
  Report Type: Spontaneous
  Country: FR (occurrence: FR)
  Receive Date: 20220907
  Receipt Date: 20220907
  Transmission Date: 20221026
  Serious: Yes (Other)
  Sender: FDA-Public Use
  Company Number: None

PATIENT
  Age: 35 Year
  Sex: Male
  Weight: 82 kg

DRUGS (2)
  1. PREDNISOLONE [Suspect]
     Active Substance: PREDNISOLONE
     Indication: Nephrotic syndrome
     Dosage: 80 MG
     Route: 048
     Dates: start: 202202, end: 20220422
  2. RITUXIMAB [Concomitant]
     Active Substance: RITUXIMAB
     Indication: Nephrotic syndrome
     Dosage: 1 G
     Route: 042
     Dates: start: 20220422, end: 20220502

REACTIONS (2)
  - Steroid withdrawal syndrome [Recovering/Resolving]
  - Arthralgia [Recovering/Resolving]

NARRATIVE: CASE EVENT DATE: 20220429
